FAERS Safety Report 6141483-9 (Version None)
Quarter: 2009Q1

REPORT INFORMATION
  Report Type: 
  Country: None (occurrence: None)
  Receive Date: 20090331
  Receipt Date: 20090319
  Transmission Date: 20090719
  Serious: Yes (Life-Threatening, Disabling)
  Sender: FDA-Public Use
  Company Number: GXKR2009GB03477

PATIENT
  Age: 55 Year
  Sex: Female
  Weight: 60 kg

DRUGS (4)
  1. VENLAFAXINE (NGX) (VENLAFAXINE) [Suspect]
     Indication: ANXIETY
     Dosage: 300 MG, QD; ORAL
     Route: 048
     Dates: start: 20020101
  2. CODEINE PHOSPHATE AND ACETAMINOPHEN [Concomitant]
  3. DIAZEPAM [Concomitant]
  4. ZOPICLONE (ZOPICLONE) [Concomitant]

REACTIONS (1)
  - LEFT VENTRICULAR FAILURE [None]
